FAERS Safety Report 7605366-7 (Version None)
Quarter: 2011Q3

REPORT INFORMATION
  Report Type: 
  Country: None (occurrence: None)
  Receive Date: 20110713
  Receipt Date: 20110706
  Transmission Date: 20111222
  Serious: Yes (Death, Life-Threatening, Hospitalization)
  Sender: FDA-Public Use
  Company Number: IE-ELI_LILLY_AND_COMPANY-IE201103008795

PATIENT
  Age: 67 Year
  Sex: Male

DRUGS (12)
  1. ZYPREXA [Suspect]
     Dosage: 30 MG, QD
     Dates: end: 20110330
  2. PROZAC [Suspect]
  3. HALOPERIDOL [Concomitant]
     Dosage: 5 MG, BID
  4. RAMIPRIL [Concomitant]
     Dosage: 2.5 MG, QD
  5. DEPIXOL [Concomitant]
     Dosage: 100 MG, EACH EVENING
  6. PRAVASTATIN [Concomitant]
     Dosage: 10 MG, QD
  7. KEMADRIN [Concomitant]
     Dosage: 5 MG, QD
  8. BISOPROLOL FUMARATE [Concomitant]
     Dosage: 1.25 MG, QD
  9. DALMANE [Concomitant]
     Dosage: 15 MG, EACH EVENING
  10. NEXIUM [Concomitant]
     Dosage: 40 MG, QD
  11. ASPIRIN [Concomitant]
     Dosage: 75 MG, QD
  12. THEOPHYLLINE [Concomitant]
     Dosage: 200 MG, BID

REACTIONS (4)
  - OVERDOSE [None]
  - SEPSIS [None]
  - LEUKOPENIA [None]
  - NEUTROPENIA [None]
